FAERS Safety Report 18929223 (Version 2)
Quarter: 2021Q2

REPORT INFORMATION
  Report Type: Report from Study
  Country: None (occurrence: US)
  Receive Date: 20210223
  Receipt Date: 20210428
  Transmission Date: 20210717
  Serious: Yes (Other)
  Sender: FDA-Public Use
  Company Number: US-ABBVIE-21K-163-3782385-00

PATIENT
  Sex: Male
  Weight: 99.43 kg

DRUGS (1)
  1. VENCLEXTA [Suspect]
     Active Substance: VENETOCLAX
     Indication: CHRONIC LYMPHOCYTIC LEUKAEMIA
     Route: 048
     Dates: start: 202007

REACTIONS (5)
  - Creatinine urine increased [Unknown]
  - Somnolence [Unknown]
  - Spinal operation [Unknown]
  - Fatigue [Unknown]
  - Urinary tract disorder [Unknown]
